FAERS Safety Report 8425491-0 (Version None)
Quarter: 2012Q2

REPORT INFORMATION
  Report Type: 
  Country: None (occurrence: None)
  Receive Date: 20120605
  Receipt Date: 20120605
  Transmission Date: 20120825
  Serious: No
  Sender: FDA-Public Use
  Company Number: None

PATIENT
  Age: 19 Year
  Sex: Male

DRUGS (1)
  1. MILRINONE LACTATE [Suspect]
     Indication: CARDIAC FAILURE
     Dosage: 0.5MCG/KG/MIN IV
     Route: 042
     Dates: start: 20120506

REACTIONS (1)
  - ATRIAL TACHYCARDIA [None]
